FAERS Safety Report 9783162 (Version 1)
Quarter: 2013Q4

REPORT INFORMATION
  Report Type: Spontaneous
  Country: AR (occurrence: AR)
  Receive Date: 20131226
  Receipt Date: 20131226
  Transmission Date: 20140711
  Serious: Yes (Hospitalization)
  Sender: FDA-Public Use
  Company Number: AR-B.I. PHARMACEUTICALS,INC./RIDGEFIELD-2013-BI-42824RA

PATIENT
  Age: 77 Year
  Sex: Female

DRUGS (9)
  1. PRADAXA [Suspect]
     Indication: THROMBOSIS PROPHYLAXIS
     Dosage: 150 MG
     Route: 048
     Dates: start: 20130927, end: 20131025
  2. PRADAXA [Suspect]
     Indication: OSTEOSYNTHESIS
     Route: 048
     Dates: start: 20131101
  3. PRADAXA [Suspect]
     Indication: THROMBOSIS
  4. UNSPECIFIED HEPARIN [Concomitant]
     Indication: THROMBOSIS PROPHYLAXIS
     Route: 058
     Dates: start: 20130925, end: 20130926
  5. UNSPECIFIED HEPARIN [Concomitant]
     Indication: OSTEOSYNTHESIS
     Route: 058
     Dates: start: 20131025, end: 20131030
  6. UNSPECIFIED HEPARIN [Concomitant]
     Indication: THROMBOSIS
  7. AMLODIPINE [Concomitant]
     Indication: HYPERTENSION
     Route: 048
  8. ATENOLOL [Concomitant]
     Indication: HYPERTENSION
     Route: 048
  9. ASPIRIN [Concomitant]
     Indication: CARDIOVASCULAR EVENT PROPHYLAXIS
     Route: 048

REACTIONS (2)
  - Venous thrombosis limb [Not Recovered/Not Resolved]
  - Pain in extremity [Recovered/Resolved]
